FAERS Safety Report 10389759 (Version 3)
Quarter: 2015Q4

REPORT INFORMATION
  Report Type: Report from Study
  Country: US (occurrence: US)
  Receive Date: 20140818
  Receipt Date: 20151211
  Transmission Date: 20160304
  Serious: Yes (Death, Other)
  Sender: FDA-Public Use
  Company Number: US-ALEXION-A201305625

PATIENT
  Age: 75 Year
  Sex: Male

DRUGS (1)
  1. SOLIRIS [Suspect]
     Active Substance: ECULIZUMAB
     Indication: PAROXYSMAL NOCTURNAL HAEMOGLOBINURIA
     Dosage: UNK
     Route: 042
     Dates: start: 20080331, end: 20111117

REACTIONS (4)
  - Blood product transfusion dependent [Recovered/Resolved]
  - Sepsis [Fatal]
  - Infection [Fatal]
  - Drug ineffective [Unknown]

NARRATIVE: CASE EVENT DATE: 20111117
